FAERS Safety Report 5380320-7 (Version None)
Quarter: 2007Q3

REPORT INFORMATION
  Report Type: 
  Country: None (occurrence: None)
  Receive Date: 20070706
  Receipt Date: 20070615
  Transmission Date: 20080115
  Serious: No
  Sender: FDA-Public Use
  Company Number: A0651769A

PATIENT
  Age: 89 Year
  Sex: Female
  Weight: 60.9 kg

DRUGS (12)
  1. TYKERB [Suspect]
     Indication: BREAST CANCER
     Dosage: 5TAB PER DAY
     Route: 048
     Dates: start: 20070513
  2. XELODA [Suspect]
     Indication: BREAST CANCER
     Dosage: 1000MG TWICE PER DAY
     Dates: start: 20070509
  3. DYAZIDE [Concomitant]
     Dosage: 37.5MG PER DAY
     Route: 048
  4. COUMADIN [Concomitant]
     Indication: ATRIAL FIBRILLATION
     Route: 048
  5. NEXIUM [Concomitant]
     Indication: GASTRIC DISORDER
     Dosage: 40MG PER DAY
     Route: 048
  6. KLOR-CON [Concomitant]
     Dosage: 20MEQ PER DAY
     Route: 048
  7. COREG [Concomitant]
     Dosage: 3.125MG TWICE PER DAY
     Route: 048
  8. NORVASC [Concomitant]
     Dosage: 1.25MG PER DAY
     Route: 048
  9. AVAPRO [Concomitant]
     Indication: DIABETES MELLITUS
     Dosage: 150MG TWICE PER DAY
     Route: 048
  10. AMBIEN [Concomitant]
     Indication: SLEEP DISORDER
     Dosage: 5MG AS REQUIRED
     Route: 048
  11. TUMS [Concomitant]
     Dosage: 1TAB PER DAY
  12. DARVOCET-N 100 [Concomitant]
     Dosage: 1TAB AS REQUIRED

REACTIONS (1)
  - DIARRHOEA [None]
